FAERS Safety Report 4690096-4 (Version None)
Quarter: 2005Q2

REPORT INFORMATION
  Report Type: 
  Country: None (occurrence: None)
  Receive Date: 20050613
  Receipt Date: 20050608
  Transmission Date: 20051028
  Serious: Yes (Other)
  Sender: FDA-Public Use
  Company Number: GBWYE696826MAY05

PATIENT
  Sex: Female

DRUGS (2)
  1. LODINE [Suspect]
     Dosage: 600 MG 2X PER 1 DAY
     Dates: start: 20040915
  2. SIBUTRAMINE (SIBUTRAMINE) [Concomitant]

REACTIONS (4)
  - ACCIDENTAL OVERDOSE [None]
  - MALAISE [None]
  - MEDICATION ERROR [None]
  - RECTAL HAEMORRHAGE [None]
